FAERS Safety Report 10952077 (Version 1)
Quarter: 2015Q1

REPORT INFORMATION
  Report Type: Spontaneous
  Country: US (occurrence: None)
  Receive Date: 20150324
  Receipt Date: 20150324
  Transmission Date: 20150721
  Serious: No
  Sender: FDA-Public Use
  Company Number: None

PATIENT
  Age: 49 Year
  Sex: Male
  Weight: 67.13 kg

DRUGS (13)
  1. ULTRACET [Concomitant]
     Active Substance: ACETAMINOPHEN\TRAMADOL HYDROCHLORIDE
  2. XANAX [Concomitant]
     Active Substance: ALPRAZOLAM
  3. CELEBREX [Concomitant]
     Active Substance: CELECOXIB
  4. PROBIOTIC [Concomitant]
     Active Substance: PROBIOTICS NOS
  5. BAYER ASPRIN [Concomitant]
  6. RESTASIS [Concomitant]
     Active Substance: CYCLOSPORINE
  7. FISH OIL [Concomitant]
     Active Substance: FISH OIL
  8. LEVAQUIN [Suspect]
     Active Substance: LEVOFLOXACIN
     Indication: SINUSITIS
     Dosage: 750 MG, 1 PILL PER DAY, BY MOUTH
     Route: 048
  9. VITAMIN C [Concomitant]
     Active Substance: ASCORBIC ACID
  10. FLEXERIL [Concomitant]
     Active Substance: CYCLOBENZAPRINE HYDROCHLORIDE
  11. CLINDAMYCIN [Concomitant]
     Active Substance: CLINDAMYCIN\CLINDAMYCIN PHOSPHATE
  12. LIDACAIN PATCH [Concomitant]
  13. MULTIVITAMIN [Concomitant]
     Active Substance: VITAMINS

REACTIONS (5)
  - Arthralgia [None]
  - Neck pain [None]
  - Myalgia [None]
  - Pain in jaw [None]
  - Musculoskeletal pain [None]

NARRATIVE: CASE EVENT DATE: 20150221
